FAERS Safety Report 16146052 (Version 3)
Quarter: 2019Q2

REPORT INFORMATION
  Report Type: Spontaneous
  Country: AT (occurrence: AT)
  Receive Date: 20190402
  Receipt Date: 20190613
  Transmission Date: 20190711
  Serious: Yes (Death, Life-Threatening, Hospitalization, Other)
  Sender: FDA-Public Use
  Company Number: AT-ACCORD-117325

PATIENT
  Age: 76 Year
  Sex: Male

DRUGS (15)
  1. CEFTOLOZANE/TAZOBACTAM [Concomitant]
     Indication: PROPHYLAXIS
  2. MEROPENEM. [Concomitant]
     Active Substance: MEROPENEM
     Indication: PROPHYLAXIS
  3. ANIDULAFUNGIN [Concomitant]
     Active Substance: ANIDULAFUNGIN
     Indication: PROPHYLAXIS
  4. AMPHOTERICIN B/AMPHOTERICIN B/LIPOSOME [Concomitant]
     Indication: PROPHYLAXIS
     Dosage: LIPOSOMAL
     Route: 055
  5. TACROLIMUS. [Suspect]
     Active Substance: TACROLIMUS
     Indication: IMMUNOSUPPRESSION
  6. GENTAMICIN. [Concomitant]
     Active Substance: GENTAMICIN
     Indication: PROPHYLAXIS
  7. SULFAMETROLE/TRIMETHOPRIM [Concomitant]
     Indication: IMMUNOSUPPRESSION
  8. CIPROFLOXACIN. [Concomitant]
     Active Substance: CIPROFLOXACIN
     Indication: PROPHYLAXIS
  9. CEFEPIME [Concomitant]
     Active Substance: CEFEPIME HYDROCHLORIDE
     Indication: PROPHYLAXIS
  10. FLUCONAZOLE. [Concomitant]
     Active Substance: FLUCONAZOLE
     Indication: PROPHYLAXIS
     Route: 051
  11. AVIBACTAM/CEFTAZIDIME [Concomitant]
     Indication: PROPHYLAXIS
  12. LINEZOLID. [Concomitant]
     Active Substance: LINEZOLID
     Indication: PROPHYLAXIS
  13. PREDNISOLONE. [Suspect]
     Active Substance: PREDNISOLONE
     Indication: IMMUNOSUPPRESSION
     Dosage: 50 MG/D-0.6 MG/KG ON POSTOPERATIVE DAY FOLLOWED BY TAPERING
  14. PIPERACILLIN SODIUM/TAZOBACTAM SODIUM [Concomitant]
     Indication: PROPHYLAXIS
  15. TEICOPLANIN [Concomitant]
     Active Substance: TEICOPLANIN
     Indication: PROPHYLAXIS

REACTIONS (7)
  - Wound dehiscence [Not Recovered/Not Resolved]
  - Purulent discharge [Not Recovered/Not Resolved]
  - Condition aggravated [Fatal]
  - Systemic mycosis [Fatal]
  - Neutropenia [Unknown]
  - Drug ineffective [Fatal]
  - Fungal infection [Unknown]
